FAERS Safety Report 4808701-8 (Version None)
Quarter: 2005Q4

REPORT INFORMATION
  Report Type: 
  Country: None (occurrence: None)
  Receive Date: 20051025
  Receipt Date: 20051018
  Transmission Date: 20060501
  Serious: Yes (Other)
  Sender: FDA-Public Use
  Company Number: 200519268GDDC

PATIENT
  Age: 69 Year
  Sex: Female

DRUGS (7)
  1. ARAVA [Suspect]
     Indication: RHEUMATOID ARTHRITIS
     Route: 048
     Dates: start: 20000317
  2. METHOTREXATE [Concomitant]
     Dosage: DOSE: UNK
  3. PIROXICAM [Concomitant]
     Dosage: DOSE: UNK
  4. PREDNISOLONE [Concomitant]
     Dosage: DOSE: UNK
  5. NEXIUM [Concomitant]
     Dosage: DOSE: UNK
  6. PLAVIX [Concomitant]
     Dosage: DOSE: UNK
  7. FOLIC ACID [Concomitant]
     Dosage: DOSE: UNK

REACTIONS (1)
  - HEPATIC ENZYME INCREASED [None]
